FAERS Safety Report 8801583 (Version 1)
Quarter: 2012Q4

REPORT INFORMATION
  Report Type: 
  Country: DE (occurrence: DE)
  Receive Date: 20120921
  Receipt Date: 20120921
  Transmission Date: 20130627
  Serious: Yes (Hospitalization)
  Sender: FDA-Public Use
  Company Number: DE-ELI_LILLY_AND_COMPANY-DE201209002936

PATIENT
  Sex: Female

DRUGS (3)
  1. FORSTEO [Suspect]
     Indication: OSTEOPOROSIS
     Dosage: UNK, qd
     Route: 058
     Dates: start: 20110610
  2. BONDIOL [Concomitant]
     Dosage: 0.5 ug, UNK
  3. DEKRISTOL [Concomitant]
     Dosage: 20000 IU, every 14 days

REACTIONS (2)
  - Fall [Recovered/Resolved]
  - Limb injury [Not Recovered/Not Resolved]
